FAERS Safety Report 5094904-7 (Version None)
Quarter: 2006Q3

REPORT INFORMATION
  Report Type: 
  Country: None (occurrence: None)
  Receive Date: 20060901
  Receipt Date: 20060824
  Transmission Date: 20061208
  Serious: Yes (Hospitalization)
  Sender: FDA-Public Use
  Company Number: US-JNJFOC-20060800432

PATIENT
  Sex: Female
  Weight: 95.26 kg

DRUGS (17)
  1. REMICADE [Suspect]
     Indication: JUVENILE ARTHRITIS
     Route: 042
  2. REMICADE [Suspect]
     Indication: RHEUMATOID ARTHRITIS
     Route: 042
  3. AVINZA [Concomitant]
     Route: 048
  4. LEVOTHROID [Concomitant]
     Route: 048
  5. ACETAZOLAMIDE [Concomitant]
     Route: 048
  6. FLEXERIL [Concomitant]
     Route: 048
  7. PREDNISONE TAB [Concomitant]
     Route: 048
  8. OXYFAST [Concomitant]
     Route: 048
  9. METHOTREXATE [Concomitant]
     Route: 058
  10. VALTREX [Concomitant]
     Route: 048
  11. DIPHENHYDRAMINE [Concomitant]
     Route: 048
  12. FOLIC ACID [Concomitant]
     Route: 048
  13. PROTONIX [Concomitant]
     Route: 048
  14. LASIX [Concomitant]
     Route: 048
  15. ZOLOFT [Concomitant]
     Route: 048
  16. PHENERGAN HCL [Concomitant]
     Route: 048
  17. PHENERGAN HCL [Concomitant]
     Route: 030

REACTIONS (2)
  - MYCOPLASMA INFECTION [None]
  - THYROIDITIS [None]
